FAERS Safety Report 6823421-6 (Version None)
Quarter: 2010Q3

REPORT INFORMATION
  Report Type: 
  Country: None (occurrence: None)
  Receive Date: 20100708
  Receipt Date: 20100623
  Transmission Date: 20110219
  Serious: Yes (Hospitalization)
  Sender: FDA-Public Use
  Company Number: PHEH2010US00584

PATIENT
  Sex: Female
  Weight: 118 kg

DRUGS (1)
  1. RECLAST [Suspect]
     Indication: OSTEOPOROSIS
     Dosage: 05 MG, UNK
     Route: 042
     Dates: start: 20100107

REACTIONS (5)
  - BLOOD POTASSIUM DECREASED [None]
  - FEELING ABNORMAL [None]
  - MYALGIA [None]
  - NAUSEA [None]
  - VOMITING [None]
